FAERS Safety Report 14214521 (Version 1)
Quarter: 2017Q4

REPORT INFORMATION
  Report Type: Spontaneous
  Country: US (occurrence: US)
  Receive Date: 20171122
  Receipt Date: 20171122
  Transmission Date: 20180321
  Serious: No
  Sender: FDA-Public Use
  Company Number: US-ROCHE-1847283

PATIENT
  Sex: Male

DRUGS (2)
  1. PULMOZYME [Suspect]
     Active Substance: DORNASE ALFA
     Indication: CYSTIC FIBROSIS
     Route: 065
     Dates: start: 201410
  2. HYPERTONIC SALINE [Concomitant]
     Active Substance: SODIUM CHLORIDE
     Indication: CYSTIC FIBROSIS

REACTIONS (4)
  - Respiratory syncytial virus infection [Recovered/Resolved]
  - Ear infection [Recovered/Resolved]
  - Nasopharyngitis [Recovered/Resolved]
  - Extra dose administered [Unknown]
